FAERS Safety Report 17632085 (Version 3)
Quarter: 2020Q2

REPORT INFORMATION
  Report Type: Spontaneous
  Country: JP (occurrence: JP)
  Receive Date: 20200406
  Receipt Date: 20200608
  Transmission Date: 20200713
  Serious: Yes (Hospitalization, Other)
  Sender: FDA-Public Use
  Company Number: JP-OTSUKA-2020_008850

PATIENT
  Age: 58 Year
  Sex: Male

DRUGS (7)
  1. SAMSCA [Suspect]
     Active Substance: TOLVAPTAN
     Indication: CONGENITAL CYSTIC KIDNEY DISEASE
     Dosage: 60 MG/DAY, FREQUENCY UNKNOWN
     Route: 048
     Dates: start: 20190827, end: 20191018
  2. SAMSCA [Suspect]
     Active Substance: TOLVAPTAN
     Indication: CONGENITAL CYSTIC KIDNEY DISEASE
     Dosage: 60 MG/DAY, FREQUENCY UNKNOWN
     Route: 048
     Dates: start: 20191206, end: 20200117
  3. SAMSCA [Suspect]
     Active Substance: TOLVAPTAN
     Dosage: 60 MG/DAY, FREQUENCY UNKNOWN
     Route: 048
     Dates: start: 20191021, end: 20191114
  4. ZACRAS [Concomitant]
     Active Substance: AMLODIPINE BESYLATE\AZILSARTAN
     Indication: PRODUCT USED FOR UNKNOWN INDICATION
     Dosage: UNK
     Route: 048
     Dates: start: 20190514
  5. SAMSCA [Suspect]
     Active Substance: TOLVAPTAN
     Dosage: 90 MG/DAY, FREQUENCY UNKNOWN
     Route: 048
     Dates: start: 20191115, end: 20191202
  6. FEBURIC [Concomitant]
     Active Substance: FEBUXOSTAT
     Indication: PRODUCT USED FOR UNKNOWN INDICATION
     Dosage: ?T, QD (IN THE MORNING)
     Route: 048
     Dates: start: 20190514
  7. ARGAMATE [Concomitant]
     Active Substance: CALCIUM POLYSTYRENE SULFONATE
     Indication: PRODUCT USED FOR UNKNOWN INDICATION
     Dosage: 2T, QD
     Route: 048
     Dates: start: 20190920, end: 20200117

REACTIONS (5)
  - Dehydration [Unknown]
  - Deep vein thrombosis [Recovered/Resolved]
  - Hypernatraemia [Unknown]
  - Hypertension [Unknown]
  - Pulmonary embolism [Unknown]

NARRATIVE: CASE EVENT DATE: 20200117
